FAERS Safety Report 22177177 (Version 1)
Quarter: 2023Q2

REPORT INFORMATION
  Report Type: Spontaneous
  Country: GB (occurrence: GB)
  Receive Date: 20230405
  Receipt Date: 20230405
  Transmission Date: 20230721
  Serious: Yes (Other)
  Sender: FDA-Public Use
  Company Number: GB-MHRA-MED-202302030913111420-FVDPC

PATIENT
  Age: 48 Year
  Sex: Male

DRUGS (1)
  1. CIPROFLOXACIN HYDROCHLORIDE [Suspect]
     Active Substance: CIPROFLOXACIN HYDROCHLORIDE
     Indication: Infection
     Route: 048
     Dates: start: 20230130

REACTIONS (8)
  - Medication error [Unknown]
  - Headache [Not Recovered/Not Resolved]
  - Rash [Unknown]
  - Oropharyngeal pain [Unknown]
  - Eye pain [Unknown]
  - Swelling [Unknown]
  - Pain in extremity [Unknown]
  - Tinnitus [Unknown]

NARRATIVE: CASE EVENT DATE: 20230130
